FAERS Safety Report 8051136-8 (Version None)
Quarter: 2012Q1

REPORT INFORMATION
  Report Type: 
  Country: None (occurrence: None)
  Receive Date: 20120117
  Receipt Date: 20120112
  Transmission Date: 20120608
  Serious: Yes (Life-Threatening, Other)
  Sender: FDA-Public Use
  Company Number: PHFR2011GB007400

PATIENT
  Sex: Female

DRUGS (5)
  1. HALOPERIDOL [Concomitant]
     Indication: PSYCHOTIC DISORDER
     Dosage: 5 MG, AS NECESSARY
     Route: 048
     Dates: start: 20111024
  2. PROCYCLIDINE HYDROCHLORIDE 2MG TAB [Concomitant]
     Indication: EXTRAPYRAMIDAL DISORDER
     Dosage: 5 MG, UNK
     Route: 048
     Dates: start: 20111207
  3. CLOZARIL [Suspect]
     Indication: SCHIZOPHRENIA, PARANOID TYPE
     Dosage: 12.5 MG, UNK
     Route: 048
     Dates: start: 20111222, end: 20111222
  4. LORAZEPAM [Concomitant]
     Indication: AGITATION
     Dosage: 1 MG, AS NECESSARY
     Route: 048
     Dates: start: 20111024
  5. PIPOTIAZINE PALMITATE [Concomitant]
     Indication: SCHIZOPHRENIA, PARANOID TYPE
     Dosage: 50 MG, UNK
     Route: 030
     Dates: start: 20111127, end: 20111209

REACTIONS (7)
  - RESPIRATORY ARREST [None]
  - DYSPNOEA [None]
  - PALLOR [None]
  - HEART RATE INCREASED [None]
  - CIRCULATORY COLLAPSE [None]
  - FALL [None]
  - CARDIAC ARREST [None]
